FAERS Safety Report 6429172-4 (Version None)
Quarter: 2009Q4

REPORT INFORMATION
  Report Type: 
  Country: None (occurrence: None)
  Receive Date: 20091105
  Receipt Date: 20091026
  Transmission Date: 20100525
  Serious: Yes (Hospitalization)
  Sender: FDA-Public Use
  Company Number: US-ABBOTT-08P-163-0447253-00

PATIENT
  Sex: Female
  Weight: 56.75 kg

DRUGS (7)
  1. HUMIRA [Suspect]
     Indication: CROHN'S DISEASE
     Route: 058
     Dates: start: 20071121, end: 20080201
  2. HUMIRA [Suspect]
     Route: 058
     Dates: start: 20080415, end: 20090701
  3. VALTREX [Concomitant]
     Indication: HERPES VIRUS INFECTION
     Route: 048
     Dates: start: 20080301
  4. CYCLOSPORINE [Concomitant]
     Indication: CROHN'S DISEASE
     Route: 048
     Dates: start: 20080201
  5. PRILOSEC [Concomitant]
     Indication: OESOPHAGEAL ULCER
     Dosage: OVER THE COUNTER
     Route: 048
  6. ASACOL [Concomitant]
     Indication: CROHN'S DISEASE
     Route: 048
     Dates: start: 20071001
  7. TWO DIFFERENT EYE DROPS [Concomitant]
     Indication: GLAUCOMA

REACTIONS (9)
  - DECREASED IMMUNE RESPONSIVENESS [None]
  - DYSPNOEA [None]
  - HAEMORRHAGE [None]
  - HERPES VIRUS INFECTION [None]
  - PRURITUS [None]
  - PSEUDOMONAS INFECTION [None]
  - SWELLING FACE [None]
  - URTICARIA [None]
  - WOUND HAEMORRHAGE [None]
